FAERS Safety Report 7912169-2 (Version None)
Quarter: 2011Q4

REPORT INFORMATION
  Report Type: 
  Country: None (occurrence: None)
  Receive Date: 20111114
  Receipt Date: 20111103
  Transmission Date: 20120403
  Serious: Yes (Death)
  Sender: FDA-Public Use
  Company Number: US-ACTELION-A-NJ2011-56301

PATIENT

DRUGS (5)
  1. TRACLEER [Suspect]
     Indication: PULMONARY ARTERIAL HYPERTENSION
     Dosage: 125 MG, BID
     Route: 048
     Dates: end: 20111101
  2. COUMADIN [Concomitant]
  3. CALCIUM CHANNEL BLOCKERS [Concomitant]
  4. TRACLEER [Suspect]
     Dosage: UNK MG, BID
     Route: 048
     Dates: start: 20090130
  5. VENTAVIS [Suspect]
     Indication: PULMONARY ARTERIAL HYPERTENSION
     Dosage: 6-8 TIMES DAILY
     Route: 055
     Dates: start: 20111024, end: 20111101

REACTIONS (4)
  - FATIGUE [None]
  - MALAISE [None]
  - CARDIAC ARREST [None]
  - DYSPNOEA [None]
